FAERS Safety Report 13006964 (Version 2)
Quarter: 2016Q4

REPORT INFORMATION
  Report Type: Spontaneous
  Country: JP (occurrence: JP)
  Receive Date: 20161207
  Receipt Date: 20161222
  Transmission Date: 20170207
  Serious: Yes (Hospitalization)
  Sender: FDA-Public Use
  Company Number: JP-CELGENEUS-JPN-2016117344

PATIENT
  Age: 90 Year
  Sex: Female

DRUGS (2)
  1. REVLIMID [Suspect]
     Active Substance: LENALIDOMIDE
     Indication: PLASMA CELL MYELOMA
     Dosage: 10MG
     Route: 048
     Dates: start: 20150223, end: 20150907
  2. REVLIMID [Suspect]
     Active Substance: LENALIDOMIDE
     Dosage: 10MG
     Route: 048
     Dates: start: 20160105, end: 20161022

REACTIONS (2)
  - Fall [Unknown]
  - Pubis fracture [Recovering/Resolving]

NARRATIVE: CASE EVENT DATE: 20161022
